FAERS Safety Report 12856815 (Version 4)
Quarter: 2017Q1

REPORT INFORMATION
  Report Type: Spontaneous
  Country: US (occurrence: US)
  Receive Date: 20161018
  Receipt Date: 20170109
  Transmission Date: 20170428
  Serious: No
  Sender: FDA-Public Use
  Company Number: US-PFIZER INC-2016482003

PATIENT
  Age: 52 Year
  Sex: Male
  Weight: 136 kg

DRUGS (4)
  1. GEODON [Suspect]
     Active Substance: ZIPRASIDONE HYDROCHLORIDE\ZIPRASIDONE MESYLATE
     Indication: DISSOCIATIVE DISORDER
     Dosage: 2 DF, DAILY
     Route: 048
     Dates: start: 201610, end: 201610
  2. ABILIFY [Suspect]
     Active Substance: ARIPIPRAZOLE
     Indication: SCHIZOPHRENIA
     Dosage: 20 MG, 1X/DAY
     Route: 048
  3. ABILIFY [Suspect]
     Active Substance: ARIPIPRAZOLE
     Indication: DEPRESSION
     Dosage: 15 MG, DAILY
  4. GEODON [Suspect]
     Active Substance: ZIPRASIDONE HYDROCHLORIDE\ZIPRASIDONE MESYLATE
     Indication: SCHIZOAFFECTIVE DISORDER
     Dosage: 10 MG, 2X/DAY
     Route: 048
     Dates: start: 20161002

REACTIONS (8)
  - Weight increased [Unknown]
  - Insomnia [Not Recovered/Not Resolved]
  - Hypervitaminosis D [Unknown]
  - Impaired driving ability [Not Recovered/Not Resolved]
  - Drug ineffective [Unknown]
  - Hypervitaminosis [Unknown]
  - Musculoskeletal stiffness [Unknown]
  - Abnormal behaviour [Unknown]

NARRATIVE: CASE EVENT DATE: 201610
